FAERS Safety Report 4421807-0 (Version None)
Quarter: 2004Q3

REPORT INFORMATION
  Report Type: 
  Country: None (occurrence: None)
  Receive Date: 20040806
  Receipt Date: 20040716
  Transmission Date: 20050211
  Serious: Yes (Other)
  Sender: FDA-Public Use
  Company Number: USA021224794

PATIENT
  Age: 78 Year
  Sex: Female
  Weight: 65 kg

DRUGS (5)
  1. FORTEO [Suspect]
     Indication: OSTEOPOROSIS
     Dosage: 20 UG/1 DAY
     Dates: start: 20021213
  2. LOTENSIN [Concomitant]
  3. PLENDIL [Concomitant]
  4. SECTRAL [Concomitant]
  5. DARVOCET-N 100 [Concomitant]

REACTIONS (16)
  - ARRHYTHMIA [None]
  - ARTHRALGIA [None]
  - BONE DENSITY DECREASED [None]
  - BONE DISORDER [None]
  - BURNING SENSATION [None]
  - DIZZINESS [None]
  - DYSSTASIA [None]
  - FATIGUE [None]
  - HAEMORRHAGE [None]
  - INJECTION SITE REACTION [None]
  - MUSCLE CRAMP [None]
  - NAUSEA [None]
  - NEUROPATHY [None]
  - PAIN IN EXTREMITY [None]
  - PHARMACEUTICAL PRODUCT COMPLAINT [None]
  - SCRATCH [None]
